FAERS Safety Report 16896015 (Version 1)
Quarter: 2019Q4

REPORT INFORMATION
  Report Type: Spontaneous
  Country: US (occurrence: US)
  Receive Date: 20191008
  Receipt Date: 20191008
  Transmission Date: 20200122
  Serious: Yes (Death, Hospitalization, Other)
  Sender: FDA-Public Use
  Company Number: US-MYLANLABS-2019M1094413

PATIENT
  Age: 66 Year
  Sex: Male

DRUGS (2)
  1. FLUDARABINE [Suspect]
     Active Substance: FLUDARABINE PHOSPHATE
     Indication: ACUTE MYELOID LEUKAEMIA
     Dosage: UNK
     Dates: start: 201106
  2. BUSULFAN. [Suspect]
     Active Substance: BUSULFAN
     Indication: ACUTE MYELOID LEUKAEMIA
     Dosage: UNK
     Dates: start: 201106

REACTIONS (11)
  - Mucormycosis [Fatal]
  - Myopathy [Unknown]
  - Acute myeloid leukaemia recurrent [Unknown]
  - Chloroma [Unknown]
  - Acute graft versus host disease [Unknown]
  - Liver function test increased [Unknown]
  - Septic shock [Unknown]
  - Sinusitis [Fatal]
  - Nerve injury [Unknown]
  - Chronic graft versus host disease [Unknown]
  - Infection [Unknown]

NARRATIVE: CASE EVENT DATE: 2011
